FAERS Safety Report 19423869 (Version 1)
Quarter: 2021Q2

REPORT INFORMATION
  Report Type: Spontaneous
  Country: GB (occurrence: GB)
  Receive Date: 20210616
  Receipt Date: 20210616
  Transmission Date: 20210717
  Serious: Yes (Hospitalization, Other)
  Sender: FDA-Public Use
  Company Number: GB-LUPIN PHARMACEUTICALS INC.-2021-09394

PATIENT
  Age: 51 Year
  Sex: Female

DRUGS (1)
  1. LEVONORGESTREL. [Suspect]
     Active Substance: LEVONORGESTREL
     Indication: HEAVY MENSTRUAL BLEEDING
     Dosage: 20 MICROGRAM, QD (INTRAUTERINE DELIVERY SYSTEM)
     Route: 015

REACTIONS (2)
  - Endometrial adenocarcinoma [Recovered/Resolved]
  - Endometrial hyperplasia [Recovered/Resolved]
